FAERS Safety Report 16995829 (Version 1)
Quarter: 2019Q4

REPORT INFORMATION
  Report Type: Spontaneous
  Country: JP (occurrence: JP)
  Receive Date: 20191105
  Receipt Date: 20191105
  Transmission Date: 20200122
  Serious: Yes (Hospitalization, Other)
  Sender: FDA-Public Use
  Company Number: JP-JAZZ-2019-JP-015180

PATIENT
  Sex: Male

DRUGS (1)
  1. DEFITELIO [Suspect]
     Active Substance: DEFIBROTIDE SODIUM
     Indication: PRODUCT USED FOR UNKNOWN INDICATION
     Dosage: 6.25 MG/KG, QID
     Route: 042
     Dates: start: 20190925, end: 2019

REACTIONS (2)
  - Cerebral haemorrhage [Recovered/Resolved]
  - Cystitis haemorrhagic [Recovered/Resolved]
